FAERS Safety Report 4843610-X (Version None)
Quarter: 2005Q4

REPORT INFORMATION
  Report Type: 
  Country: None (occurrence: None)
  Receive Date: 20051202
  Receipt Date: 20051124
  Transmission Date: 20060501
  Serious: Yes (Other)
  Sender: FDA-Public Use
  Company Number: CA-JNJFOC-20050906763

PATIENT
  Sex: Female
  Weight: 70 kg

DRUGS (11)
  1. CAELYX [Suspect]
     Indication: OVARIAN CANCER
     Route: 042
  2. CITALOPRAM HYDROBROMIDE [Concomitant]
  3. TRAZODONE [Concomitant]
     Dosage: AT BEDTIME
  4. RANITIDINE [Concomitant]
  5. STEROIDS [Concomitant]
  6. MAXERAN [Concomitant]
     Indication: PREMEDICATION
  7. ZOFRAN [Concomitant]
     Indication: PREMEDICATION
  8. DECADRON [Concomitant]
     Indication: PREMEDICATION
  9. TYLENOL [Concomitant]
     Indication: PREMEDICATION
  10. BENADRYL [Concomitant]
     Indication: PREMEDICATION
     Route: 042
  11. ZANTAC [Concomitant]
     Indication: PREMEDICATION

REACTIONS (4)
  - BALANCE DISORDER [None]
  - CEREBELLAR ATAXIA [None]
  - NAUSEA [None]
  - PARANEOPLASTIC SYNDROME [None]
